FAERS Safety Report 8100771-7 (Version None)
Quarter: 2012Q1

REPORT INFORMATION
  Report Type: 
  Country: None (occurrence: None)
  Receive Date: 20120129
  Receipt Date: 20111013
  Transmission Date: 20120608
  Serious: No
  Sender: FDA-Public Use
  Company Number: US-ABBOTT-11P-163-0864234-00

PATIENT
  Sex: Female
  Weight: 90.8 kg

DRUGS (14)
  1. HUMIRA [Suspect]
     Indication: RHEUMATOID ARTHRITIS
     Dates: start: 20110208
  2. IRON [Concomitant]
     Indication: MINERAL SUPPLEMENTATION
  3. HYDROCHLOROTHIAZIDE [Concomitant]
     Indication: HYPERTENSION
  4. CLONAZEPAM [Concomitant]
     Indication: ANXIETY
  5. LATUDA [Concomitant]
     Indication: ATTENTION DEFICIT/HYPERACTIVITY DISORDER
  6. LISINOPRIL [Concomitant]
     Indication: HYPERTENSION
  7. CEPTIRIZINE [Concomitant]
     Indication: HYPERSENSITIVITY
  8. CYMBALTA [Concomitant]
     Indication: DEPRESSION
  9. GABAPENTIN [Concomitant]
     Indication: FIBROMYALGIA
  10. SUMATRIPTAN [Concomitant]
     Indication: MIGRAINE
  11. CYPROHATADINE [Concomitant]
     Indication: ADENOMATOUS POLYPOSIS COLI
  12. TRAMADOL HCL [Concomitant]
     Indication: PAIN
  13. ASCORBIC ACID [Concomitant]
     Indication: VITAMIN SUPPLEMENTATION
  14. METADATE CD [Concomitant]
     Indication: ATTENTION DEFICIT/HYPERACTIVITY DISORDER

REACTIONS (1)
  - INCORRECT DRUG ADMINISTRATION DURATION [None]
